FAERS Safety Report 23424224 (Version 1)
Quarter: 2024Q1

REPORT INFORMATION
  Report Type: Spontaneous
  Country: US (occurrence: US)
  Receive Date: 20240120
  Receipt Date: 20240120
  Transmission Date: 20240410
  Serious: No
  Sender: FDA-Public Use
  Company Number: US-ABBVIE-5589741

PATIENT
  Sex: Female

DRUGS (1)
  1. BOTOX [Suspect]
     Active Substance: ONABOTULINUMTOXINA
     Indication: Spinal disorder
     Dosage: TIME INTERVAL: AS NECESSARY
     Route: 065

REACTIONS (3)
  - Adverse drug reaction [Unknown]
  - Drug ineffective for unapproved indication [Unknown]
  - Off label use [Unknown]
